FAERS Safety Report 8564551-0 (Version None)
Quarter: 2012Q3

REPORT INFORMATION
  Report Type: 
  Country: None (occurrence: None)
  Receive Date: 20120803
  Receipt Date: 20120727
  Transmission Date: 20120928
  Serious: Yes (Hospitalization)
  Sender: FDA-Public Use
  Company Number: JP-009507513-1207JPN012593

PATIENT

DRUGS (12)
  1. TELAVIC [Suspect]
     Route: 048
  2. VOLTAREN [Concomitant]
     Indication: PROPHYLAXIS
     Route: 054
     Dates: start: 20120316, end: 20120317
  3. FAMOTIDINE [Concomitant]
     Indication: PROPHYLAXIS
     Route: 048
  4. PEG-INTRON [Suspect]
     Indication: HEPATITIS C
     Dosage: 1.204 MICROGRAM/KG/WEEK
     Route: 058
     Dates: start: 20120316, end: 20120318
  5. REBETOL [Suspect]
     Route: 048
  6. PREDNISOLONE [Concomitant]
     Indication: PROPHYLAXIS
     Route: 048
     Dates: end: 20120506
  7. TELAVIC [Suspect]
     Indication: HEPATITIS C
     Route: 048
     Dates: start: 20120316, end: 20120318
  8. MEFENAMIC ACID [Concomitant]
     Indication: PYREXIA
     Dosage: AS NEEDED
     Route: 048
     Dates: start: 20120507
  9. PREDNISOLONE [Concomitant]
     Route: 048
     Dates: start: 20120507, end: 20120514
  10. REBETOL [Suspect]
     Indication: HEPATITIS C
     Route: 048
     Dates: start: 20120316, end: 20120318
  11. DIFLAL [Concomitant]
     Indication: PROPHYLAXIS
     Dosage: AS NEEDED
     Route: 061
  12. PEG-INTRON [Suspect]
     Dosage: 1.024 MICROGRAM/KG/WEEK
     Route: 058
     Dates: start: 20120417

REACTIONS (1)
  - ERYTHEMA [None]
